FAERS Safety Report 5647696-4 (Version None)
Quarter: 2008Q1

REPORT INFORMATION
  Report Type: 
  Country: None (occurrence: None)
  Receive Date: 20080303
  Receipt Date: 20080220
  Transmission Date: 20080703
  Serious: Yes (Other)
  Sender: FDA-Public Use
  Company Number: US-PFIZER INC-2008007819

PATIENT
  Sex: Female

DRUGS (2)
  1. NORVASC [Suspect]
     Indication: HYPERTENSION
  2. LOPRESSOR [Concomitant]

REACTIONS (8)
  - BLOOD CHOLESTEROL INCREASED [None]
  - BONE PAIN [None]
  - BREAST CANCER [None]
  - CARDIAC DISORDER [None]
  - DRUG INEFFECTIVE [None]
  - FATIGUE [None]
  - PERIPHERAL VASCULAR DISORDER [None]
  - VISUAL ACUITY REDUCED [None]
